FAERS Safety Report 6838717-1 (Version None)
Quarter: 2010Q3

REPORT INFORMATION
  Report Type: 
  Country: None (occurrence: None)
  Receive Date: 20100713
  Receipt Date: 20070606
  Transmission Date: 20110219
  Serious: No
  Sender: FDA-Public Use
  Company Number: US-PFIZER INC-2007044182

PATIENT
  Sex: Female
  Weight: 70.454 kg

DRUGS (6)
  1. CHANTIX [Suspect]
     Indication: SMOKING CESSATION THERAPY
     Dates: start: 20070510, end: 20070525
  2. LISINOPRIL AND HYDROCHLOROTHIAZIDE [Concomitant]
     Indication: HYPERTENSION
  3. PREMARIN [Concomitant]
  4. PRILOSEC [Concomitant]
     Indication: DYSPEPSIA
  5. ACETYLSALICYLIC ACID [Concomitant]
  6. ACETAMINOPHEN [Concomitant]

REACTIONS (2)
  - DIZZINESS [None]
  - NAUSEA [None]
